FAERS Safety Report 14515682 (Version 1)
Quarter: 2018Q1

REPORT INFORMATION
  Report Type: Report from Study
  Country: US (occurrence: US)
  Receive Date: 20180210
  Receipt Date: 20180210
  Transmission Date: 20180509
  Serious: No
  Sender: FDA-Public Use
  Company Number: US-PUMA BIOTECHNOLOGY, LTD.-2017US015220

PATIENT

DRUGS (2)
  1. LOPERAMIDE [Suspect]
     Active Substance: LOPERAMIDE
     Indication: PROPHYLAXIS
     Dosage: 4 MG, TID
     Dates: start: 20171027
  2. NERLYNX [Suspect]
     Active Substance: NERATINIB
     Indication: BREAST CANCER
     Dosage: 240 MG, DAILY
     Route: 048
     Dates: start: 20171103

REACTIONS (3)
  - Drug administration error [Unknown]
  - Diarrhoea [Unknown]
  - Constipation [Not Recovered/Not Resolved]

NARRATIVE: CASE EVENT DATE: 20171101
